FAERS Safety Report 5764431-X (Version None)
Quarter: 2008Q2

REPORT INFORMATION
  Report Type: 
  Country: None (occurrence: None)
  Receive Date: 20080610
  Receipt Date: 20080529
  Transmission Date: 20081010
  Serious: Yes (Life-Threatening)
  Sender: FDA-Public Use
  Company Number: DE-PFIZER INC-2008046028

PATIENT
  Sex: Female
  Weight: 58 kg

DRUGS (10)
  1. LYRICA [Suspect]
     Route: 048
  2. MEMANTINE HCL [Concomitant]
  3. BACLOFEN [Concomitant]
  4. ASPIRIN [Concomitant]
  5. DELIX [Concomitant]
  6. ALL OTHER THERAPEUTIC PRODUCTS [Concomitant]
  7. FUROSEMIDE [Concomitant]
  8. ALLOPURINOL [Concomitant]
  9. RIVOTRIL [Concomitant]
  10. GABAPENTIN [Concomitant]

REACTIONS (2)
  - HYPOGLYCAEMIA [None]
  - LOSS OF CONSCIOUSNESS [None]
